FAERS Safety Report 9579893 (Version 2)
Quarter: 2013Q4

REPORT INFORMATION
  Report Type: Report from Study
  Country: HU (occurrence: HU)
  Receive Date: 20131002
  Receipt Date: 20131002
  Transmission Date: 20140711
  Serious: Yes (Death)
  Sender: FDA-Public Use
  Company Number: HU-ROCHE-GNE250464

PATIENT
  Age: 72 Year
  Sex: Female
  Weight: 54.06 kg

DRUGS (5)
  1. RITUXIMAB [Suspect]
     Indication: MANTLE CELL LYMPHOMA
     Dosage: 600 MG, Q3W
     Route: 042
     Dates: start: 20070901
  2. CYCLOPHOSPHAMIDE [Concomitant]
     Indication: MANTLE CELL LYMPHOMA
  3. EPIRUBICIN [Concomitant]
     Indication: MANTLE CELL LYMPHOMA
  4. VINCRISTINE [Concomitant]
     Indication: MANTLE CELL LYMPHOMA
  5. PREDNISONE [Concomitant]
     Indication: MANTLE CELL LYMPHOMA

REACTIONS (2)
  - Encephalomalacia [Fatal]
  - Lymphoma [Fatal]
